FAERS Safety Report 19940813 (Version 1)
Quarter: 2021Q4

REPORT INFORMATION
  Report Type: Spontaneous
  Country: FR (occurrence: FR)
  Receive Date: 20211011
  Receipt Date: 20211011
  Transmission Date: 20220304
  Serious: Yes (Death, Hospitalization)
  Sender: FDA-Public Use
  Company Number: FR-PHARMGEN-2021PGLIT00009

PATIENT
  Age: 38 Year
  Sex: Female

DRUGS (1)
  1. BETAMETHASONE DIPROPIONATE [Suspect]
     Active Substance: BETAMETHASONE DIPROPIONATE
     Indication: Pruritus
     Route: 061

REACTIONS (9)
  - Multiple organ dysfunction syndrome [Fatal]
  - Adrenal insufficiency [Fatal]
  - Cushing^s syndrome [Fatal]
  - Osteoporosis [Fatal]
  - Skin candida [Fatal]
  - Fracture [Fatal]
  - Fall [Fatal]
  - Wound necrosis [Fatal]
  - Skin atrophy [Fatal]
